FAERS Safety Report 9896055 (Version 2)
Quarter: 2014Q1

REPORT INFORMATION
  Report Type: Spontaneous
  Country: US (occurrence: US)
  Receive Date: 20140213
  Receipt Date: 20140213
  Transmission Date: 20141002
  Serious: No
  Sender: FDA-Public Use
  Company Number: US-BRISTOL-MYERS SQUIBB COMPANY-19021542

PATIENT
  Age: 81 Year
  Sex: Female
  Weight: 66.66 kg

DRUGS (6)
  1. ORENCIA FOR INJ [Suspect]
     Indication: RHEUMATOID ARTHRITIS
     Dosage: LAST ADMINISTERED DOSE ON 13JUN2013.
     Route: 058
     Dates: start: 201112, end: 201202
  2. METFORMIN HCL [Suspect]
  3. JANUVIA [Concomitant]
  4. TRAMADOL [Concomitant]
     Indication: PAIN
  5. OXYCODONE HCL + ACETAMINOPHEN [Concomitant]
     Indication: PAIN
     Dosage: PRODUCT STRENGTH: OXYCODONE+ACETAMINOPHEN 5/325.
  6. ATENOLOL [Concomitant]
     Indication: HYPERTENSION

REACTIONS (1)
  - Drug ineffective [Unknown]
